FAERS Safety Report 13948522 (Version 1)
Quarter: 2017Q3

REPORT INFORMATION
  Report Type: Spontaneous
  Country: GB (occurrence: GB)
  Receive Date: 20170908
  Receipt Date: 20170908
  Transmission Date: 20171128
  Serious: Yes (Other)
  Sender: FDA-Public Use
  Company Number: GB-TEVA-804105ACC

PATIENT
  Age: 26 Year
  Sex: Female
  Weight: 102 kg

DRUGS (12)
  1. DULOXETINE HYDROCHLORIDE. [Suspect]
     Active Substance: DULOXETINE HYDROCHLORIDE
     Indication: ANXIETY DISORDER
     Route: 048
     Dates: start: 20170814, end: 20170816
  2. ONDANSETRON HYDROCHLORIDE. [Concomitant]
     Active Substance: ONDANSETRON HYDROCHLORIDE
  3. AMOXICILLIN AND CLAVULANIC ACID [Concomitant]
     Active Substance: AMOXICILLIN\CLAVULANIC ACID
  4. ESCITALOPRAM [Concomitant]
     Active Substance: ESCITALOPRAM OXALATE
  5. DIHYDROCODEINE PHOSPHATE [Concomitant]
     Active Substance: DIHYDROCODEINE PHOSPHATE
  6. ORAMORPH [Concomitant]
     Active Substance: MORPHINE SULFATE
  7. TRAMADOL. [Concomitant]
     Active Substance: TRAMADOL
  8. CODEINE [Concomitant]
     Active Substance: CODEINE
  9. NITROFURANTOINE [Concomitant]
  10. CYCLIZINE HYDROCHLORIDE [Concomitant]
     Active Substance: CYCLIZINE HYDROCHLORIDE
  11. DIAZEPAM. [Concomitant]
     Active Substance: DIAZEPAM
  12. DICLOFENAC DIETHYLAMINE [Concomitant]
     Active Substance: DICLOFENAC DIETHYLAMINE

REACTIONS (3)
  - Pain [Unknown]
  - Oromandibular dystonia [Unknown]
  - Dyskinesia [Recovering/Resolving]

NARRATIVE: CASE EVENT DATE: 20170814
